FAERS Safety Report 24040738 (Version 1)
Quarter: 2024Q3

REPORT INFORMATION
  Report Type: Spontaneous
  Country: CN (occurrence: CN)
  Receive Date: 20240702
  Receipt Date: 20240702
  Transmission Date: 20241016
  Serious: Yes (Hospitalization)
  Sender: ROCHE
  Company Number: CN-ROCHE-10000013522

PATIENT
  Age: 56 Year
  Sex: Female
  Weight: 64 kg

DRUGS (6)
  1. TRASTUZUMAB EMTANSINE [Suspect]
     Active Substance: TRASTUZUMAB EMTANSINE
     Indication: Breast cancer
     Route: 042
     Dates: start: 20240523, end: 20240523
  2. PYROTINIB MALEATE [Concomitant]
     Active Substance: PYROTINIB MALEATE
  3. Palonosetron Injection [Concomitant]
  4. LEUCOGEN [Concomitant]
     Active Substance: LEUCOGEN
     Route: 048
  5. PHOSPHOLIPID [Concomitant]
     Active Substance: PHOSPHOLIPID
     Route: 048
  6. OPRELVEKIN [Concomitant]
     Active Substance: OPRELVEKIN
     Dosage: 12 MILLION U

REACTIONS (1)
  - Myelosuppression [Recovering/Resolving]

NARRATIVE: CASE EVENT DATE: 20240620
